FAERS Safety Report 17118261 (Version 1)
Quarter: 2019Q4

REPORT INFORMATION
  Report Type: Spontaneous
  Country: US (occurrence: US)
  Receive Date: 20191205
  Receipt Date: 20191205
  Transmission Date: 20200122
  Serious: Yes (Death)
  Sender: FDA-Public Use
  Company Number: US-GE HEALTHCARE LIFE SCIENCES-2019CSU006053

PATIENT

DRUGS (2)
  1. GADOLINIUM (UNSPECIFIED) [Suspect]
     Active Substance: GADOLINIUM
     Indication: PRODUCT USED FOR UNKNOWN INDICATION
  2. GADOLINIUM (UNSPECIFIED) [Suspect]
     Active Substance: GADOLINIUM
     Indication: IMAGING PROCEDURE
     Dosage: 6 ML INJECTED DIRECTLY INTO THE CEREBROSPINAL FLUID
     Route: 037

REACTIONS (2)
  - Death [Fatal]
  - Off label use [Unknown]
